FAERS Safety Report 10049130 (Version 1)
Quarter: 2014Q2

REPORT INFORMATION
  Report Type: Spontaneous
  Country: GB (occurrence: GB)
  Receive Date: 20140401
  Receipt Date: 20140401
  Transmission Date: 20141212
  Serious: Yes (Other)
  Sender: FDA-Public Use
  Company Number: GB-JNJFOC-20140313343

PATIENT
  Age: 2 Year
  Sex: Female

DRUGS (4)
  1. CALPOL INFANT SUSPENSION [Suspect]
     Indication: PAIN
     Route: 048
  2. CALPOL INFANT SUSPENSION [Suspect]
     Indication: PAIN
     Route: 048
  3. CALPOL INFANT SUSPENSION [Suspect]
     Indication: INJECTION
     Route: 048
  4. CALPOL INFANT SUSPENSION [Suspect]
     Indication: INJECTION
     Route: 048

REACTIONS (3)
  - Gastroenteritis eosinophilic [Unknown]
  - Colitis [Unknown]
  - Food allergy [Unknown]
